FAERS Safety Report 9286420 (Version 1)
Quarter: 2013Q2

REPORT INFORMATION
  Report Type: Spontaneous
  Country: FR (occurrence: FR)
  Receive Date: 20130513
  Receipt Date: 20130513
  Transmission Date: 20140414
  Serious: Yes (Hospitalization)
  Sender: FDA-Public Use
  Company Number: FR-JNJFOC-20130502779

PATIENT
  Age: 86 Year
  Sex: Female

DRUGS (5)
  1. XARELTO [Suspect]
     Indication: PRODUCT USED FOR UNKNOWN INDICATION
     Route: 048
     Dates: start: 2012, end: 20130417
  2. TINSET [Concomitant]
     Route: 065
  3. LEXOMIL [Concomitant]
     Route: 065
  4. COTAREG [Concomitant]
     Route: 065
  5. TANGANIL [Concomitant]
     Route: 065

REACTIONS (1)
  - Anaemia [Recovering/Resolving]
